FAERS Safety Report 7222749-8 (Version None)
Quarter: 2011Q1

REPORT INFORMATION
  Report Type: 
  Country: None (occurrence: None)
  Receive Date: 20110112
  Receipt Date: 20101115
  Transmission Date: 20110831
  Serious: No
  Sender: FDA-Public Use
  Company Number: US-BAYER-2010-008186

PATIENT
  Sex: Female
  Weight: 57 kg

DRUGS (1)
  1. ALEVE-D SINUS + COLD [Suspect]
     Indication: SINUS HEADACHE
     Dosage: UNK
     Route: 048
     Dates: start: 20101113

REACTIONS (3)
  - SINUS DISORDER [None]
  - HOT FLUSH [None]
  - FEELING COLD [None]
